FAERS Safety Report 18763548 (Version 2)
Quarter: 2021Q1

REPORT INFORMATION
  Report Type: Spontaneous
  Country: US (occurrence: US)
  Receive Date: 20210120
  Receipt Date: 20210120
  Transmission Date: 20210419
  Serious: No
  Sender: FDA-Public Use
  Company Number: US-SOMERSET-2020-US-000409

PATIENT
  Age: 59 Year
  Sex: Female

DRUGS (3)
  1. LATANOPROST 0.005%  O?S [Concomitant]
     Dosage: PATIENT INSTILLS 1 DROP IN L EYE ONCE A DAY
  2. ALPHAGAN 0.1% O?S [Concomitant]
     Dosage: 1 DROP IN L EYE TWICE PER DAY
  3. DORZOLAMIDE HYDROCHLORIDE AND TIMOLOL MALEATE OPHTHALMIC [Suspect]
     Active Substance: DORZOLAMIDE HYDROCHLORIDE\TIMOLOL MALEATE
     Dosage: 1 DROP IN HER L EYE TWICE PER DAY
     Dates: start: 20200923, end: 20201006

REACTIONS (1)
  - Ocular hyperaemia [Recovered/Resolved]

NARRATIVE: CASE EVENT DATE: 20200924
